FAERS Safety Report 13345425 (Version 1)
Quarter: 2017Q1

REPORT INFORMATION
  Report Type: Spontaneous
  Country: US (occurrence: US)
  Receive Date: 20170316
  Receipt Date: 20170316
  Transmission Date: 20170428
  Serious: Yes (Other)
  Sender: FDA-Public Use
  Company Number: None

PATIENT
  Age: 78 Year
  Sex: Female
  Weight: 55.8 kg

DRUGS (2)
  1. LIDOCAINE HCL/PHENYLEPHRINE [Suspect]
     Active Substance: LIDOCAINE\PHENYLEPHRINE
     Indication: MIOSIS
     Dosage: ?          OTHER FREQUENCY:SINGLE DOSE;?
     Route: 031
     Dates: start: 20170201, end: 20170201
  2. LIDOCAINE HCL/PHENYLEPHRINE [Suspect]
     Active Substance: LIDOCAINE\PHENYLEPHRINE
     Indication: PAIN
     Dosage: ?          OTHER FREQUENCY:SINGLE DOSE;?
     Route: 031
     Dates: start: 20170201, end: 20170201

REACTIONS (2)
  - Post procedural infection [None]
  - Candida test positive [None]

NARRATIVE: CASE EVENT DATE: 20170201
